FAERS Safety Report 8762866 (Version 1)
Quarter: 2012Q4

REPORT INFORMATION
  Report Type: 
  Country: US (occurrence: US)
  Receive Date: 20120829
  Receipt Date: 20120829
  Transmission Date: 20130627
  Serious: No
  Sender: FDA-Public Use
  Company Number: US-PFIZER INC-2012208869

PATIENT
  Age: 79 Year

DRUGS (6)
  1. VANCOMYCIN HCL [Suspect]
     Dosage: UNK
  2. VANCOMYCIN [Suspect]
     Dosage: UNK
  3. LEVAQUIN [Suspect]
     Dosage: UNK
  4. SOMA [Suspect]
     Dosage: UNK
  5. OLEANDOMYCIN [Concomitant]
  6. TETRACYCLINE [Suspect]

REACTIONS (1)
  - Drug hypersensitivity [Unknown]
